FAERS Safety Report 4809640-9 (Version None)
Quarter: 2005Q4

REPORT INFORMATION
  Report Type: 
  Country: None (occurrence: None)
  Receive Date: 20051020
  Receipt Date: 20051006
  Transmission Date: 20060501
  Serious: Yes (Death)
  Sender: FDA-Public Use
  Company Number: 2005BH002264

PATIENT

DRUGS (1)
  1. ADVATE [Suspect]

REACTIONS (1)
  - CEREBRAL HAEMORRHAGE [None]
